FAERS Safety Report 11097643 (Version 2)
Quarter: 2015Q2

REPORT INFORMATION
  Report Type: Report from Study
  Country: IT (occurrence: IT)
  Receive Date: 20150507
  Receipt Date: 20150507
  Transmission Date: 20150821
  Serious: Yes (Death, Hospitalization)
  Sender: FDA-Public Use
  Company Number: IT-ACTAVIS-2015-09258

PATIENT
  Age: 65 Year
  Sex: Female

DRUGS (22)
  1. DEXAMETHASONE (UNKNOWN) [Suspect]
     Active Substance: DEXAMETHASONE
     Dosage: UNKNOWN DOSE, LINE 4, CYCLE 1, CYCLICAL
     Route: 065
     Dates: start: 20130705, end: 20130920
  2. VELCADE [Suspect]
     Active Substance: BORTEZOMIB
     Dosage: 1.3 MG/M2, CYCLICAL
     Route: 065
     Dates: start: 20120709, end: 20120729
  3. DEXAMETHASONE (UNKNOWN) [Suspect]
     Active Substance: DEXAMETHASONE
     Dosage: UNKNOWN DOSE, LINE 1, CYCLE 2, CYCLICAL
     Route: 065
     Dates: start: 20120618, end: 20120706
  4. DEXAMETHASONE (UNKNOWN) [Suspect]
     Active Substance: DEXAMETHASONE
     Dosage: UNKNOWN DOSE, LINE 1, CYCLE 7, CYCLICAL
     Route: 065
     Dates: start: 20130108, end: 20130109
  5. VELCADE [Suspect]
     Active Substance: BORTEZOMIB
     Dosage: 1.3 MG/M2, CYCLICAL
     Route: 065
     Dates: start: 20120802, end: 20120819
  6. DEXAMETHASONE (UNKNOWN) [Suspect]
     Active Substance: DEXAMETHASONE
     Dosage: UNKNOWN DOSE, LINE 1, CYCLE 4, CYCLICAL
     Route: 065
     Dates: start: 20120820, end: 20120830
  7. DEXAMETHASONE (UNKNOWN) [Suspect]
     Active Substance: DEXAMETHASONE
     Dosage: UNKNOWN DOSE, LINE 5, CYCLE 1, CYCLICAL
     Route: 065
     Dates: start: 20130927, end: 20131011
  8. VELCADE [Suspect]
     Active Substance: BORTEZOMIB
     Dosage: 1.3 MG/M2, CYCLICAL
     Route: 065
     Dates: start: 20120820, end: 20120830
  9. VELCADE [Suspect]
     Active Substance: BORTEZOMIB
     Dosage: 1.3 MG/M2, CYCLICAL
     Route: 065
     Dates: start: 20120910, end: 20120929
  10. VELCADE [Suspect]
     Active Substance: BORTEZOMIB
     Dosage: 1.3 MG/M2, CYCLICAL
     Route: 065
     Dates: start: 20121220, end: 20121231
  11. DEXAMETHASONE (UNKNOWN) [Suspect]
     Active Substance: DEXAMETHASONE
     Dosage: UNKNOWN DOSE, LINE 1, CYCLE 3, CYCLICAL
     Route: 065
     Dates: start: 20120709, end: 20120729
  12. VELCADE [Suspect]
     Active Substance: BORTEZOMIB
     Indication: PLASMA CELL MYELOMA
     Dosage: 1.3 MG/M2, CYCLICAL
     Route: 065
     Dates: start: 20120502, end: 20120522
  13. VELCADE [Suspect]
     Active Substance: BORTEZOMIB
     Dosage: 1.3 MG/M2, CYCLICAL
     Route: 065
     Dates: start: 20120618, end: 20120706
  14. VELCADE [Suspect]
     Active Substance: BORTEZOMIB
     Dosage: 1.3 MG/M2, CYCLICAL
     Route: 065
     Dates: start: 20130705, end: 20130920
  15. DOXORUBICIN [Suspect]
     Active Substance: DOXORUBICIN
     Indication: PLASMA CELL MYELOMA
     Dosage: UNKNOWN DOSE, LINE 4, CYCLE 1, CYCLICAL
     Route: 042
     Dates: start: 20130705, end: 20130920
  16. DEXAMETHASONE (UNKNOWN) [Suspect]
     Active Substance: DEXAMETHASONE
     Dosage: UNKNOWN DOSE, LINE 1, CYCLE 4, CYCLICAL
     Route: 065
     Dates: start: 20120802, end: 20120819
  17. DEXAMETHASONE (UNKNOWN) [Suspect]
     Active Substance: DEXAMETHASONE
     Dosage: UNKNOWN DOSE, LINE 1, CYCLE 5, CYCLICAL
     Route: 065
     Dates: start: 20120910, end: 20120929
  18. DEXAMETHASONE (UNKNOWN) [Suspect]
     Active Substance: DEXAMETHASONE
     Dosage: UNKNOWN DOSE, LINE 1, CYCLE 6, CYCLICAL
     Route: 065
     Dates: start: 20121220, end: 20121231
  19. BENDAMUSTINE (UNKNOWN) [Suspect]
     Active Substance: BENDAMUSTINE
     Indication: PLASMA CELL MYELOMA
     Dosage: UNKNOWN DOSE, LINE 2, CYCLE 1, ONCE DAILY
     Route: 065
     Dates: start: 20130108, end: 20130109
  20. BENDAMUSTINE (UNKNOWN) [Suspect]
     Active Substance: BENDAMUSTINE
     Dosage: UNKNOWN DOSE, LINE 5, CYCLE 1, CYCLICAL
     Route: 065
     Dates: start: 20130923, end: 20131011
  21. DEXAMETHASONE (UNKNOWN) [Suspect]
     Active Substance: DEXAMETHASONE
     Indication: PLASMA CELL MYELOMA
     Dosage: UNKNOWN DOSE, LINE 1, CYCLE 1, CYCLICAL
     Route: 065
     Dates: start: 20120502, end: 20120522
  22. VELCADE [Suspect]
     Active Substance: BORTEZOMIB
     Dosage: 1.3 MG/M2, CYCLICAL
     Route: 065
     Dates: start: 20130927, end: 20131011

REACTIONS (6)
  - General physical health deterioration [None]
  - Pathological fracture [Fatal]
  - Multi-organ failure [None]
  - Plasma cell myeloma [None]
  - Pulmonary embolism [None]
  - Dyspnoea [None]

NARRATIVE: CASE EVENT DATE: 20131009
